FAERS Safety Report 13950024 (Version 1)
Quarter: 2017Q3

REPORT INFORMATION
  Report Type: Spontaneous
  Country: US (occurrence: US)
  Receive Date: 20170908
  Receipt Date: 20170908
  Transmission Date: 20171128
  Serious: Yes (Death)
  Sender: FDA-Public Use
  Company Number: US-ROCHE-1133651

PATIENT
  Age: 72 Year
  Sex: Female

DRUGS (12)
  1. CAMPATH [Concomitant]
     Active Substance: ALEMTUZUMAB
     Route: 042
  2. CAMPATH [Concomitant]
     Active Substance: ALEMTUZUMAB
     Route: 042
  3. BIAXIN [Concomitant]
     Active Substance: CLARITHROMYCIN
  4. FAMVIR [Concomitant]
     Active Substance: FAMCICLOVIR
     Route: 065
  5. SEPTRA DS [Concomitant]
     Active Substance: SULFAMETHOXAZOLE\TRIMETHOPRIM
     Route: 065
  6. RITUXAN [Suspect]
     Active Substance: RITUXIMAB
     Indication: CHRONIC LYMPHOCYTIC LEUKAEMIA
     Route: 042
     Dates: start: 20000216
  7. TYLENOL [Concomitant]
     Active Substance: ACETAMINOPHEN
     Route: 048
  8. BENADRYL [Concomitant]
     Active Substance: DIPHENHYDRAMINE HYDROCHLORIDE
     Route: 043
  9. RITUXAN [Suspect]
     Active Substance: RITUXIMAB
     Route: 042
     Dates: start: 20000308
  10. RITUXAN [Suspect]
     Active Substance: RITUXIMAB
     Route: 042
     Dates: start: 20000302
  11. CAMPATH [Concomitant]
     Active Substance: ALEMTUZUMAB
     Route: 042
  12. FLUCONAZOLE. [Concomitant]
     Active Substance: FLUCONAZOLE
     Route: 065

REACTIONS (6)
  - Pyrexia [Unknown]
  - Hyperhidrosis [Recovered/Resolved]
  - Chills [Recovered/Resolved]
  - Cough [Unknown]
  - Sputum discoloured [Unknown]
  - Asthenia [Unknown]

NARRATIVE: CASE EVENT DATE: 20000216
